FAERS Safety Report 24371488 (Version 1)
Quarter: 2024Q3

REPORT INFORMATION
  Report Type: Spontaneous
  Country: CN (occurrence: CN)
  Receive Date: 20240927
  Receipt Date: 20240927
  Transmission Date: 20241016
  Serious: Yes (Hospitalization)
  Sender: PFIZER
  Company Number: CN-PFIZER INC-PV202400124932

PATIENT
  Age: 64 Year
  Sex: Female
  Weight: 46 kg

DRUGS (3)
  1. EXEMESTANE [Suspect]
     Active Substance: EXEMESTANE
     Indication: Breast neoplasm
     Dosage: 25 MG, 1X/DAY
     Route: 048
     Dates: start: 20240315, end: 20240604
  2. ESZOPICLONE [Concomitant]
     Active Substance: ESZOPICLONE
     Indication: Anxiolytic therapy
     Dosage: 1 MG, 1X/DAY
     Route: 048
     Dates: start: 20240315, end: 20240923
  3. ESCITALOPRAM OXALATE [Concomitant]
     Active Substance: ESCITALOPRAM OXALATE
     Indication: Anxiolytic therapy
     Dosage: 10 MG, 1X/DAY
     Route: 048
     Dates: start: 20240315, end: 20240924

REACTIONS (1)
  - Hepatic enzyme increased [Recovering/Resolving]

NARRATIVE: CASE EVENT DATE: 20240604
